FAERS Safety Report 13024145 (Version 1)
Quarter: 2016Q4

REPORT INFORMATION
  Report Type: Spontaneous
  Country: FR (occurrence: FR)
  Receive Date: 20161213
  Receipt Date: 20161213
  Transmission Date: 20170207
  Serious: Yes (Hospitalization)
  Sender: FDA-Public Use
  Company Number: FR-JNJFOC-20161207263

PATIENT
  Age: 63 Year
  Sex: Male
  Weight: 100 kg

DRUGS (1)
  1. HALDOL DECANOATE [Suspect]
     Active Substance: HALOPERIDOL DECANOATE
     Indication: SCHIZOPHRENIA
     Dosage: MORE THAN 25 YEARS; 1 INJECTION OF 6 AMPLOULES
     Route: 030

REACTIONS (5)
  - Pancytopenia [Recovering/Resolving]
  - Neutropenia [Recovering/Resolving]
  - Injection site pain [Unknown]
  - Thrombocytopenia [Recovering/Resolving]
  - Haemolytic anaemia [Recovering/Resolving]

NARRATIVE: CASE EVENT DATE: 201610
